FAERS Safety Report 4601432-9 (Version None)
Quarter: 2005Q1

REPORT INFORMATION
  Report Type: 
  Country: None (occurrence: None)
  Receive Date: 20050308
  Receipt Date: 20050222
  Transmission Date: 20050727
  Serious: Yes (Hospitalization)
  Sender: FDA-Public Use
  Company Number: US-GLAXOSMITHKLINE-A0546880A

PATIENT
  Age: 51 Year
  Sex: Male
  Weight: 120 kg

DRUGS (2)
  1. NICORETTE [Suspect]
     Dosage: 4MG AS REQUIRED
     Route: 002
     Dates: start: 20030101
  2. NICORETTE [Suspect]
     Dosage: 4MG AS REQUIRED
     Route: 002
     Dates: start: 20050101, end: 20050220

REACTIONS (11)
  - CHEST PAIN [None]
  - COUGH [None]
  - DEPENDENCE [None]
  - DRUG ABUSER [None]
  - INCREASED UPPER AIRWAY SECRETION [None]
  - LUNG NEOPLASM MALIGNANT [None]
  - LYMPHOMA [None]
  - PNEUMONIA [None]
  - THROAT IRRITATION [None]
  - THROAT TIGHTNESS [None]
  - TONGUE COATED [None]
